FAERS Safety Report 12461337 (Version 1)
Quarter: 2016Q2

REPORT INFORMATION
  Report Type: Spontaneous
  Country: US (occurrence: US)
  Receive Date: 20160613
  Receipt Date: 20160613
  Transmission Date: 20160815
  Serious: No
  Sender: FDA-Public Use
  Company Number: US-US WORLDMEDS, LLC-USW201509-000244

PATIENT
  Age: 84 Year
  Sex: Male
  Weight: 65.77 kg

DRUGS (5)
  1. APOKYN [Suspect]
     Active Substance: APOMORPHINE HYDROCHLORIDE
     Indication: PARKINSON^S DISEASE
     Route: 058
     Dates: start: 20150904, end: 20150904
  2. BABY ASPIRIN [Concomitant]
     Active Substance: ASPIRIN
  3. TRIMETHOBENZAMIDE [Concomitant]
     Active Substance: TRIMETHOBENZAMIDE
  4. QUETIAPINE. [Concomitant]
     Active Substance: QUETIAPINE
  5. CARB/LEVO [Concomitant]
     Active Substance: CARBIDOPA\LEVODOPA

REACTIONS (5)
  - Rhinorrhoea [Recovering/Resolving]
  - Yawning [Recovering/Resolving]
  - Hallucination [Recovering/Resolving]
  - Somnolence [Recovering/Resolving]
  - Confusional state [Recovering/Resolving]

NARRATIVE: CASE EVENT DATE: 20150904
